FAERS Safety Report 10021932 (Version 2)
Quarter: 2014Q2

REPORT INFORMATION
  Report Type: Spontaneous
  Country: NZ (occurrence: NZ)
  Receive Date: 20140319
  Receipt Date: 20140409
  Transmission Date: 20141212
  Serious: Yes (Death, Hospitalization, Disabling, Other)
  Sender: FDA-Public Use
  Company Number: NZ-B.I. PHARMACEUTICALS,INC./RIDGEFIELD-2014-BI-11319AU

PATIENT
  Age: 78 Year
  Sex: Male
  Weight: 81 kg

DRUGS (5)
  1. PRADAXA [Suspect]
     Indication: ATRIAL FIBRILLATION
     Dosage: 220 MG
     Route: 065
     Dates: start: 20130713, end: 20140124
  2. BISOPROLOL [Concomitant]
     Dosage: 5 MG
     Route: 065
     Dates: start: 201308
  3. ATORVASTATIN [Concomitant]
     Dosage: 40 MG
     Route: 065
     Dates: start: 201301
  4. CILAZAPRIL [Concomitant]
     Dosage: 2.5 MG
     Route: 065
     Dates: start: 201208
  5. ASPIRIN [Concomitant]
     Dosage: 100 MG
     Route: 065
     Dates: start: 201401

REACTIONS (5)
  - Death [Fatal]
  - Cerebrovascular accident [Unknown]
  - Cerebrovascular accident [Unknown]
  - Ischaemic stroke [Unknown]
  - Cerebrovascular accident [Unknown]
